FAERS Safety Report 7549328-7 (Version None)
Quarter: 2011Q2

REPORT INFORMATION
  Report Type: 
  Country: None (occurrence: None)
  Receive Date: 20110615
  Receipt Date: 20020225
  Transmission Date: 20111010
  Serious: Yes (Hospitalization)
  Sender: FDA-Public Use
  Company Number: PHEH2002US02098

PATIENT
  Sex: Male

DRUGS (6)
  1. PROPAFENONE HCL [Concomitant]
  2. NITROGLYCERIN [Concomitant]
     Dosage: UNK
  3. EXELON [Suspect]
     Indication: DEMENTIA ALZHEIMER'S TYPE
     Dosage: 3 MG, BID
     Route: 048
     Dates: start: 20001201
  4. LIPITOR [Concomitant]
  5. GLUCOTROL [Concomitant]
  6. COUMADIN [Concomitant]

REACTIONS (6)
  - CIRCULATORY COLLAPSE [None]
  - URETHRAL OBSTRUCTION [None]
  - CARDIAC FAILURE CONGESTIVE [None]
  - URINARY TRACT INFECTION [None]
  - HYPOTENSION [None]
  - DEHYDRATION [None]
